FAERS Safety Report 7235420-3 (Version None)
Quarter: 2011Q1

REPORT INFORMATION
  Report Type: 
  Country: None (occurrence: None)
  Receive Date: 20110120
  Receipt Date: 20110110
  Transmission Date: 20110831
  Serious: Yes (Other)
  Sender: FDA-Public Use
  Company Number: US-RB-018731-11

PATIENT
  Age: 83 Year
  Sex: Female

DRUGS (2)
  1. MUCINEX D [Suspect]
     Indication: SINUS DISORDER
     Dosage: PATIENT TAKES AS MANY AS 8 TABLETS PER DAY
     Route: 048
  2. ALEVE [Concomitant]

REACTIONS (6)
  - INCORRECT DRUG ADMINISTRATION DURATION [None]
  - DRUG INEFFECTIVE [None]
  - SOMNOLENCE [None]
  - FEELING ABNORMAL [None]
  - DRUG ABUSE [None]
  - OVERDOSE [None]
